FAERS Safety Report 14093642 (Version 1)
Quarter: 2017Q4

REPORT INFORMATION
  Report Type: Spontaneous
  Country: GB (occurrence: GB)
  Receive Date: 20171016
  Receipt Date: 20171016
  Transmission Date: 20180321
  Serious: Yes (Other)
  Sender: FDA-Public Use
  Company Number: GB-TEVA-814227ACC

PATIENT
  Age: 16 Year
  Sex: Male

DRUGS (1)
  1. VALPROATE SODIUM. [Suspect]
     Active Substance: VALPROATE SODIUM
     Route: 065

REACTIONS (3)
  - Foetal exposure during pregnancy [Unknown]
  - Learning disability [Unknown]
  - Autism spectrum disorder [Unknown]
